FAERS Safety Report 13067306 (Version 2)
Quarter: 2017Q1

REPORT INFORMATION
  Report Type: Report from Study
  Country: DE (occurrence: DE)
  Receive Date: 20161228
  Receipt Date: 20170124
  Transmission Date: 20170428
  Serious: Yes (Hospitalization, Other)
  Sender: FDA-Public Use
  Company Number: DE-ROCHE-1872484

PATIENT
  Sex: Male
  Weight: 112 kg

DRUGS (3)
  1. RANIBIZUMAB [Suspect]
     Active Substance: RANIBIZUMAB
     Indication: MACULAR OEDEMA
     Dosage: UNK
     Route: 031
     Dates: start: 20140731
  2. RANIBIZUMAB [Suspect]
     Active Substance: RANIBIZUMAB
     Indication: RETINAL VEIN OCCLUSION
     Dosage: UNK
     Route: 031
     Dates: start: 20161124, end: 20161124
  3. RANIBIZUMAB [Suspect]
     Active Substance: RANIBIZUMAB
     Indication: VISUAL IMPAIRMENT
     Dosage: UNK
     Route: 031
     Dates: start: 20160201

REACTIONS (3)
  - Retinal oedema [Recovered/Resolved]
  - Cerebrovascular accident [Recovered/Resolved]
  - Retinal cyst [Unknown]

NARRATIVE: CASE EVENT DATE: 20160310
